FAERS Safety Report 5427163-3 (Version None)
Quarter: 2007Q3

REPORT INFORMATION
  Report Type: 
  Country: None (occurrence: None)
  Receive Date: 20070828
  Receipt Date: 20070816
  Transmission Date: 20080115
  Serious: Yes (Other)
  Sender: FDA-Public Use
  Company Number: PHBS2007SE13648

PATIENT
  Age: 17 Year
  Sex: Male

DRUGS (4)
  1. RITALIN [Suspect]
     Dosage: 510 MG, ONCE/SINGLE
  2. RITALIN [Suspect]
  3. IKTORIVIL [Concomitant]
  4. ALCOHOL [Concomitant]

REACTIONS (7)
  - ALTERED STATE OF CONSCIOUSNESS [None]
  - DRUG TOXICITY [None]
  - ELECTROCARDIOGRAM ST SEGMENT ELEVATION [None]
  - HEART RATE DECREASED [None]
  - MYDRIASIS [None]
  - SLUGGISHNESS [None]
  - SOMNOLENCE [None]
